FAERS Safety Report 24124535 (Version 1)
Quarter: 2024Q3

REPORT INFORMATION
  Report Type: Report from Study
  Country: US (occurrence: None)
  Receive Date: 20240723
  Receipt Date: 20240723
  Transmission Date: 20241016
  Serious: Yes (Hospitalization)
  Sender: ASTRAZENECA
  Company Number: 2020SF65927

PATIENT
  Sex: Male

DRUGS (1)
  1. CALQUENCE [Suspect]
     Active Substance: ACALABRUTINIB
     Indication: Mantle cell lymphoma
     Route: 048

REACTIONS (5)
  - Nephrolithiasis [Unknown]
  - Crohn^s disease [Unknown]
  - Lymphadenopathy [Unknown]
  - Pain [Unknown]
  - Product dose omission issue [Unknown]
